FAERS Safety Report 25982853 (Version 1)
Quarter: 2025Q4

REPORT INFORMATION
  Report Type: Spontaneous
  Country: US (occurrence: US)
  Receive Date: 20251031
  Receipt Date: 20251031
  Transmission Date: 20260117
  Serious: Yes (Death, Other)
  Sender: EPIC PHARMA LLC
  Company Number: US-EPICPHARMA-US-2025EPCSPO01178

PATIENT
  Age: 37 Year
  Sex: Male

DRUGS (1)
  1. OXAZEPAM [Suspect]
     Active Substance: OXAZEPAM
     Indication: Product used for unknown indication
     Route: 065

REACTIONS (2)
  - Poisoning [Fatal]
  - Drug screen positive [Fatal]
